FAERS Safety Report 8282592-8 (Version None)
Quarter: 2012Q2

REPORT INFORMATION
  Report Type: 
  Country: None (occurrence: None)
  Receive Date: 20120410
  Receipt Date: 20120404
  Transmission Date: 20120825
  Serious: Yes (Hospitalization)
  Sender: FDA-Public Use
  Company Number: 2012HGS-003409

PATIENT
  Age: 54 Year
  Sex: Female
  Weight: 77.1115 kg

DRUGS (21)
  1. VITAMIN D [Concomitant]
  2. HYDROXYCHLOROQUINE SULFATE [Concomitant]
  3. LEXAPRO [Concomitant]
  4. RAMIPRIL [Concomitant]
  5. LIPITOR [Concomitant]
  6. EFFIENT (PRASUGREL HYDROCHLORIDE) [Concomitant]
  7. OXYCODONE HCL [Concomitant]
  8. ASCORBIC ACID [Concomitant]
  9. DILTIAZEM [Concomitant]
  10. BIOTIN (BIOTIN) [Concomitant]
  11. VITAMIN E [Concomitant]
  12. ASPIRIN (ASCETYLSALICYLIC ACID) [Concomitant]
  13. DULCOLAX [Concomitant]
  14. XANAX [Concomitant]
  15. VENTOLIN [Concomitant]
  16. GLYBURIDE [Concomitant]
  17. BENLYSTA [Suspect]
     Indication: SYSTEMIC LUPUS ERYTHEMATOSUS
     Dosage: 1 IN 14 D, INTRAVENOUS DRIP
     Route: 041
     Dates: start: 20120329
  18. GABAPENTIN [Concomitant]
  19. PROTONIX [Concomitant]
  20. BENADRYL [Concomitant]
  21. PREDNISONE TAB [Concomitant]

REACTIONS (5)
  - FALL [None]
  - FATIGUE [None]
  - BACK PAIN [None]
  - HEAD INJURY [None]
  - PAIN IN EXTREMITY [None]
